FAERS Safety Report 7647423-5 (Version None)
Quarter: 2011Q3

REPORT INFORMATION
  Report Type: 
  Country: None (occurrence: None)
  Receive Date: 20110726
  Receipt Date: 20110722
  Transmission Date: 20111222
  Serious: Yes (Death)
  Sender: FDA-Public Use
  Company Number: 2011SP034209

PATIENT
  Age: 80 Year
  Weight: 55 kg

DRUGS (6)
  1. FERROUS SULFATE TAB [Concomitant]
  2. TEMODAL [Suspect]
     Indication: GLIOBLASTOMA
     Dosage: 130 MG/M2; ONCE; IV
     Route: 042
     Dates: start: 20110719, end: 20110720
  3. IRBESARTAN [Concomitant]
  4. ZOLPIDEM [Concomitant]
  5. BEVACIZUMAB (BEVACIZUMAB) [Suspect]
     Indication: GLIOBLASTOMA
     Dosage: 10 MG/KG;
     Dates: start: 20110719, end: 20110719
  6. ESCITALOPRAM OXALATE [Concomitant]

REACTIONS (4)
  - INTRAVENTRICULAR HAEMORRHAGE [None]
  - BRAIN OEDEMA [None]
  - INTRACRANIAL TUMOUR HAEMORRHAGE [None]
  - BRAIN HERNIATION [None]
